FAERS Safety Report 8245018-6 (Version None)
Quarter: 2012Q1

REPORT INFORMATION
  Report Type: 
  Country: None (occurrence: None)
  Receive Date: 20120329
  Receipt Date: 20120322
  Transmission Date: 20120608
  Serious: Yes (Hospitalization, Other)
  Sender: FDA-Public Use
  Company Number: US-US-EMD SERONO, INC.-7121292

PATIENT
  Sex: Female

DRUGS (3)
  1. REBIF [Suspect]
     Route: 058
     Dates: start: 20110520
  2. INSULIN [Concomitant]
     Indication: DIABETES MELLITUS
     Dates: start: 19720101
  3. REBIF [Suspect]
     Indication: MULTIPLE SCLEROSIS
     Dates: start: 20060101

REACTIONS (4)
  - SCLERODERMA [None]
  - MULTIPLE FRACTURES [None]
  - SYSTEMIC LUPUS ERYTHEMATOSUS [None]
  - FALL [None]
